FAERS Safety Report 4910867-6 (Version None)
Quarter: 2006Q1

REPORT INFORMATION
  Report Type: 
  Country: None (occurrence: None)
  Receive Date: 20060208
  Receipt Date: 20060208
  Transmission Date: 20060701
  Serious: Yes (Hospitalization, Other)
  Sender: FDA-Public Use
  Company Number: None

PATIENT
  Age: 53 Year
  Sex: Male
  Weight: 63.05 kg

DRUGS (1)
  1. EPOETIN [Suspect]
     Indication: ANAEMIA
     Dosage: 40,000 UNITS WEEKLY

REACTIONS (3)
  - EMBOLISM [None]
  - MUSCLE NECROSIS [None]
  - THROMBOSIS [None]
